FAERS Safety Report 12089270 (Version 1)
Quarter: 2016Q1

REPORT INFORMATION
  Report Type: Spontaneous
  Country: US (occurrence: US)
  Receive Date: 20160218
  Receipt Date: 20160218
  Transmission Date: 20160526
  Serious: No
  Sender: FDA-Public Use
  Company Number: US-PERRIGO-15US012381

PATIENT
  Age: 6 Month
  Sex: Female
  Weight: 7.71 kg

DRUGS (1)
  1. CETIRIZINE HYDROCHLORIDE. [Suspect]
     Active Substance: CETIRIZINE HYDROCHLORIDE
     Indication: EXPOSURE DURING BREAST FEEDING
     Dosage: UNKNOWN, UNKNOWN
     Route: 048
     Dates: start: 20150525

REACTIONS (1)
  - Exposure during breast feeding [Unknown]

NARRATIVE: CASE EVENT DATE: 20150525
